FAERS Safety Report 23874224 (Version 1)
Quarter: 2024Q2

REPORT INFORMATION
  Report Type: Spontaneous
  Country: ES (occurrence: ES)
  Receive Date: 20240520
  Receipt Date: 20240520
  Transmission Date: 20240716
  Serious: Yes (Other)
  Sender: FDA-Public Use
  Company Number: ES-NOVPHSZ-PHHY2019ES226059

PATIENT

DRUGS (3)
  1. CARBAMAZEPINE [Suspect]
     Active Substance: CARBAMAZEPINE
     Indication: Trigeminal neuralgia
     Dosage: UNK
     Route: 065
  2. REBIF [Suspect]
     Active Substance: INTERFERON BETA-1A
     Indication: Multiple sclerosis
     Dosage: UNK
     Route: 065
  3. COPAXONE [Suspect]
     Active Substance: GLATIRAMER ACETATE
     Indication: Multiple sclerosis
     Dosage: 40 UG, THREE DAYS A WEEK
     Route: 065
     Dates: start: 201702

REACTIONS (7)
  - Relapsing-remitting multiple sclerosis [Not Recovered/Not Resolved]
  - Multiple sclerosis [Unknown]
  - Hyperreflexia [Unknown]
  - Paraparesis [Unknown]
  - Ophthalmoplegia [Unknown]
  - Facial asymmetry [Unknown]
  - Cerebellar syndrome [Unknown]

NARRATIVE: CASE EVENT DATE: 20140101
